FAERS Safety Report 10248524 (Version 1)
Quarter: 2014Q2

REPORT INFORMATION
  Report Type: Spontaneous
  Country: US (occurrence: US)
  Receive Date: 20140620
  Receipt Date: 20140620
  Transmission Date: 20141212
  Serious: Yes (Other)
  Sender: FDA-Public Use
  Company Number: US-AMGEN-USASP2014045027

PATIENT
  Age: 54 Year
  Sex: Female

DRUGS (1)
  1. ENBREL [Suspect]
     Indication: RHEUMATOID ARTHRITIS
     Dosage: 50 MG, QWK
     Route: 065
     Dates: start: 20130823

REACTIONS (4)
  - Impaired healing [Not Recovered/Not Resolved]
  - Ankle operation [Recovered/Resolved]
  - Weight bearing difficulty [Not Recovered/Not Resolved]
  - Incision site infection [Not Recovered/Not Resolved]
